FAERS Safety Report 10330314 (Version 2)
Quarter: 2014Q3

REPORT INFORMATION
  Report Type: Spontaneous
  Country: JP (occurrence: JP)
  Receive Date: 20140722
  Receipt Date: 20140804
  Transmission Date: 20150326
  Serious: Yes (Other)
  Sender: FDA-Public Use
  Company Number: PHHY2014JP087160

PATIENT
  Sex: Female

DRUGS (1)
  1. METHOTREXATE [Suspect]
     Active Substance: METHOTREXATE
     Indication: RHEUMATOID ARTHRITIS

REACTIONS (8)
  - Pulmonary mass [Recovering/Resolving]
  - Tonsillar ulcer [Recovering/Resolving]
  - Skin mass [Recovering/Resolving]
  - Skin lesion [Recovering/Resolving]
  - Lung neoplasm malignant [Recovering/Resolving]
  - Nodule [Recovering/Resolving]
  - Adrenal gland cancer [Recovering/Resolving]
  - Epstein-Barr virus associated lymphoproliferative disorder [Recovering/Resolving]
